FAERS Safety Report 8602339-2 (Version None)
Quarter: 2012Q3

REPORT INFORMATION
  Report Type: 
  Country: None (occurrence: None)
  Receive Date: 20120817
  Receipt Date: 20120807
  Transmission Date: 20120928
  Serious: Yes (Other)
  Sender: FDA-Public Use
  Company Number: DE-UCBSA-063507

PATIENT
  Sex: Female

DRUGS (8)
  1. OMEPRAZOLE [Concomitant]
     Indication: PROPHYLAXIS
     Dates: start: 20061101
  2. SIMVASTATIN [Concomitant]
     Indication: HYPERCHOLESTEROLAEMIA
     Dates: start: 20100225
  3. PREDNISOLONE [Concomitant]
     Indication: RHEUMATOID ARTHRITIS
     Dates: start: 20061101, end: 20100119
  4. METHOTREXATE [Concomitant]
     Indication: RHEUMATOID ARTHRITIS
     Dates: start: 20061101
  5. PREDNISOLONE [Concomitant]
     Dates: start: 20100120
  6. RAMIPRIL DURA PLUS [Concomitant]
     Indication: HYPERTENSION
     Dosage: 2.5/12.5MG
     Dates: start: 20060101
  7. MICTONORM UNO [Concomitant]
     Indication: INCONTINENCE
     Dates: start: 20080101
  8. CIMZIA [Suspect]
     Indication: RHEUMATOID ARTHRITIS
     Dosage: 200MG
     Route: 058
     Dates: start: 20091101, end: 20110901

REACTIONS (1)
  - RASH [None]
